FAERS Safety Report 19433445 (Version 1)
Quarter: 2021Q2

REPORT INFORMATION
  Report Type: Spontaneous
  Country: CA (occurrence: CA)
  Receive Date: 20210617
  Receipt Date: 20210617
  Transmission Date: 20210717
  Serious: Yes (Hospitalization, Other)
  Sender: FDA-Public Use
  Company Number: CA-PFIZER INC-2021663865

PATIENT
  Sex: Female

DRUGS (6)
  1. PREDNISONE. [Suspect]
     Active Substance: PREDNISONE
     Route: 048
  2. PENICILLIN G POTASSIUM. [Suspect]
     Active Substance: PENICILLIN G POTASSIUM
  3. HYDROCORTISONE. [Suspect]
     Active Substance: HYDROCORTISONE
  4. AZATHIOPRINE. [Suspect]
     Active Substance: AZATHIOPRINE
  5. CODEINE [Suspect]
     Active Substance: CODEINE
  6. MESALAMINE. [Suspect]
     Active Substance: MESALAMINE
     Dosage: UNK

REACTIONS (1)
  - Drug hypersensitivity [Unknown]
